FAERS Safety Report 9518157 (Version 2)
Quarter: 2014Q1

REPORT INFORMATION
  Report Type: Spontaneous
  Country: US (occurrence: None)
  Receive Date: 20130305
  Receipt Date: 20140306
  Transmission Date: 20141002
  Serious: Yes (Other)
  Sender: FDA-Public Use
  Company Number: 163-21880-12071391

PATIENT
  Age: 63 Year
  Sex: Male

DRUGS (1)
  1. REVLIMID (LENALIDOMIDE) (CAPSULES) [Suspect]
     Indication: MYELODYSPLASTIC SYNDROME
     Dosage: 5 MG, 21 IN 21 D, PO
     Route: 048
     Dates: start: 20100526

REACTIONS (7)
  - Increased tendency to bruise [None]
  - Pruritus [None]
  - Fatigue [None]
  - Diarrhoea [None]
  - Neuropathy peripheral [None]
  - Hypoaesthesia [None]
  - Platelet count decreased [None]
